FAERS Safety Report 6261110-X (Version None)
Quarter: 2009Q3

REPORT INFORMATION
  Report Type: 
  Country: None (occurrence: None)
  Receive Date: 20090709
  Receipt Date: 20090105
  Transmission Date: 20100115
  Serious: No
  Sender: FDA-Public Use
  Company Number: US-KINGPHARMUSA00001-K200900006

PATIENT
  Sex: Female
  Weight: 77.098 kg

DRUGS (6)
  1. LEVOXYL [Suspect]
     Indication: HYPOTHYROIDISM
     Dosage: 100 MCG, QD
     Route: 048
     Dates: start: 20070529
  2. LEVOXYL [Suspect]
     Dosage: 50 MCG, QD
     Route: 048
  3. LEVOXYL [Suspect]
     Dosage: 88 MCG, QD
     Route: 048
  4. LEVOXYL [Suspect]
     Dosage: 100 MCG, QD
     Route: 048
  5. EPIDURAL SHOT [Concomitant]
     Indication: BACK DISORDER
     Dosage: UNK
     Dates: end: 20080101
  6. CITALOPRAM HYDROBROMIDE [Concomitant]
     Indication: ANXIETY
     Dosage: 1/2 PILL
     Route: 048

REACTIONS (9)
  - ABDOMINAL DISTENSION [None]
  - BLOOD THYROID STIMULATING HORMONE INCREASED [None]
  - COLD SWEAT [None]
  - DEPRESSED MOOD [None]
  - GENERAL PHYSICAL CONDITION ABNORMAL [None]
  - HYPERHIDROSIS [None]
  - SWELLING [None]
  - SWELLING FACE [None]
  - WEIGHT INCREASED [None]
